FAERS Safety Report 15893495 (Version 1)
Quarter: 2019Q1

REPORT INFORMATION
  Report Type: Spontaneous
  Country: JP (occurrence: JP)
  Receive Date: 20190131
  Receipt Date: 20190131
  Transmission Date: 20190417
  Serious: Yes (Congenital Anomaly)
  Sender: FDA-Public Use
  Company Number: JP-SUN PHARMACEUTICAL INDUSTRIES LTD-2017R3-160336

PATIENT
  Sex: Female
  Weight: 1.82 kg

DRUGS (2)
  1. APRESOLINE HYDROCHLORIDE [Suspect]
     Active Substance: HYDRALAZINE HYDROCHLORIDE
     Dosage: 80 MILLIGRAM, DAILY
     Route: 064
  2. APRESOLINE HYDROCHLORIDE [Suspect]
     Active Substance: HYDRALAZINE HYDROCHLORIDE
     Indication: GESTATIONAL HYPERTENSION
     Dosage: 40 MILLIGRAM, DAILY
     Route: 064

REACTIONS (4)
  - Coarctation of the aorta [Unknown]
  - Bicuspid aortic valve [Unknown]
  - Foetal exposure timing unspecified [Unknown]
  - Ventricular septal defect [Unknown]
